FAERS Safety Report 17676979 (Version 2)
Quarter: 2020Q2

REPORT INFORMATION
  Report Type: Spontaneous
  Country: DK (occurrence: DK)
  Receive Date: 20200416
  Receipt Date: 20200603
  Transmission Date: 20200714
  Serious: Yes (Hospitalization)
  Sender: FDA-Public Use
  Company Number: DK-BAYER-2020-059094

PATIENT
  Age: 25 Year
  Sex: Female

DRUGS (3)
  1. CIRCADIN [Concomitant]
     Active Substance: MELATONIN
     Indication: INSOMNIA
     Dosage: STYRKE: 2 MG
     Route: 048
     Dates: start: 20180518
  2. KYLEENA [Suspect]
     Active Substance: LEVONORGESTREL
     Indication: INTRAUTERINE CONTRACEPTION
     Dosage: 17.5 ?G PER DAY CONTINUOUSLY
     Route: 015
     Dates: start: 201901, end: 20200502
  3. KYLEENA [Suspect]
     Active Substance: LEVONORGESTREL
     Indication: INTRAUTERINE CONTRACEPTION
     Dosage: STYRKE: 19,5 MG
     Route: 015
     Dates: start: 201901, end: 20200502

REACTIONS (5)
  - Salpingectomy [Not Recovered/Not Resolved]
  - Ectopic pregnancy with contraceptive device [Recovering/Resolving]
  - Haemorrhage in pregnancy [Recovered/Resolved]
  - Ectopic pregnancy with contraceptive device [Recovered/Resolved]
  - Abdominal pain lower [Recovered/Resolved]

NARRATIVE: CASE EVENT DATE: 202003
